FAERS Safety Report 7811457-8 (Version None)
Quarter: 2011Q4

REPORT INFORMATION
  Report Type: 
  Country: None (occurrence: None)
  Receive Date: 20111013
  Receipt Date: 20111013
  Transmission Date: 20120403
  Serious: Yes (Other)
  Sender: FDA-Public Use
  Company Number: AU-PFIZER INC-2011241538

PATIENT
  Sex: Female

DRUGS (1)
  1. DOSTINEX [Suspect]
     Dosage: 500 UG, WEEKLY

REACTIONS (6)
  - PANIC ATTACK [None]
  - IRRITABILITY [None]
  - MYOPIA [None]
  - VISUAL IMPAIRMENT [None]
  - AGITATION [None]
  - PITUITARY TUMOUR [None]
